FAERS Safety Report 4348194-0 (Version None)
Quarter: 2004Q2

REPORT INFORMATION
  Report Type: 
  Country: None (occurrence: None)
  Receive Date: 20040422
  Receipt Date: 20040402
  Transmission Date: 20050107
  Serious: Yes (Other)
  Sender: FDA-Public Use
  Company Number: USA040258646

PATIENT
  Age: 72 Year
  Sex: Female
  Weight: 60 kg

DRUGS (11)
  1. FORTEO [Suspect]
     Indication: OSTEOPOROSIS
     Dosage: 20 UG/1 DAY
     Dates: start: 20030529
  2. ACTONEL [Concomitant]
  3. SYNTHROID [Concomitant]
  4. ASPIRIN [Concomitant]
  5. CELEBREX [Concomitant]
  6. FIORICET [Concomitant]
  7. ULTRAM [Concomitant]
  8. IRON [Concomitant]
  9. COMBIVENT [Concomitant]
  10. PREVACID [Concomitant]
  11. VERELAN (VERAPAMIL HYDROCHLORIDE) [Concomitant]

REACTIONS (11)
  - BODY HEIGHT DECREASED [None]
  - CHEST DISCOMFORT [None]
  - CONDITION AGGRAVATED [None]
  - COUGH [None]
  - DISEASE PROGRESSION [None]
  - DYSPNOEA [None]
  - EMPHYSEMA [None]
  - PLEURAL DISORDER [None]
  - PLEURAL FIBROSIS [None]
  - RESPIRATORY TRACT INFECTION FUNGAL [None]
  - WHEEZING [None]
